FAERS Safety Report 9773036 (Version 3)
Quarter: 2014Q1

REPORT INFORMATION
  Report Type: Spontaneous
  Country: JP (occurrence: JP)
  Receive Date: 20131219
  Receipt Date: 20140124
  Transmission Date: 20141002
  Serious: Yes (Hospitalization, Other)
  Sender: FDA-Public Use
  Company Number: JP-009507513-1312JPN003570

PATIENT
  Age: 75 Year
  Sex: Female

DRUGS (10)
  1. GLACTIV [Suspect]
     Indication: TYPE 2 DIABETES MELLITUS
     Dosage: 50 MG, QD, GLACTIVE TABLETS 12.5MG,25MG,50MG,100MG.
     Route: 048
     Dates: start: 20130729, end: 20130906
  2. AMARYL [Concomitant]
     Dosage: UNK
     Dates: start: 20130226
  3. METGLUCO [Concomitant]
     Dosage: UNK
     Dates: start: 201102
  4. ACTOS [Concomitant]
     Dosage: UNK
     Dates: start: 20130729
  5. RECALBON [Concomitant]
     Dosage: UNK
     Dates: start: 2011
  6. AZILVA [Concomitant]
     Dosage: UNK
     Dates: start: 20121227
  7. CRESTOR [Concomitant]
     Dosage: UNK
     Dates: start: 201102
  8. BAYASPIRIN [Concomitant]
     Dosage: UNK
     Dates: start: 2008
  9. PROCYLIN [Concomitant]
     Dosage: UNK
     Dates: start: 20130517
  10. NORVASC [Concomitant]
     Dosage: UNK
     Dates: start: 20130225

REACTIONS (2)
  - Pancreatic neoplasm [Unknown]
  - Pancreatitis acute [Recovered/Resolved]
